FAERS Safety Report 22255921 (Version 2)
Quarter: 2023Q2

REPORT INFORMATION
  Report Type: Spontaneous
  Country: IR (occurrence: IR)
  Receive Date: 20230426
  Receipt Date: 20230607
  Transmission Date: 20230722
  Serious: Yes (Death, Hospitalization)
  Sender: FDA-Public Use
  Company Number: IR-JNJFOC-20230441917

PATIENT
  Age: 63 Year
  Sex: Female

DRUGS (1)
  1. RISPERDAL [Suspect]
     Active Substance: RISPERIDONE
     Indication: Neuropsychiatric symptoms
     Route: 065

REACTIONS (1)
  - Pulmonary embolism [Fatal]
